FAERS Safety Report 24590405 (Version 1)
Quarter: 2024Q4

REPORT INFORMATION
  Report Type: Spontaneous
  Country: US (occurrence: US)
  Receive Date: 20241107
  Receipt Date: 20241107
  Transmission Date: 20250114
  Serious: No
  Sender: PFIZER
  Company Number: US-PFIZER INC-202400292602

PATIENT
  Age: 50 Year
  Sex: Female
  Weight: 57.61 kg

DRUGS (1)
  1. PREMARIN [Suspect]
     Active Substance: ESTROGENS, CONJUGATED
     Indication: Postmenopause
     Dosage: ONE APPLICATOR FULL, VAGINALLY, DAILY, FOR 14 DAYS
     Dates: start: 20241004

REACTIONS (1)
  - Pruritus [Recovered/Resolved]
